FAERS Safety Report 24388933 (Version 1)
Quarter: 2024Q4

REPORT INFORMATION
  Report Type: Spontaneous
  Country: VN (occurrence: VN)
  Receive Date: 20241002
  Receipt Date: 20241002
  Transmission Date: 20250114
  Serious: Yes (Hospitalization)
  Sender: MERCK
  Company Number: VN-009507513-2410VNM000801

PATIENT
  Age: 64 Year
  Sex: Male

DRUGS (4)
  1. KEYTRUDA [Suspect]
     Active Substance: PEMBROLIZUMAB
     Dosage: UNK
     Dates: start: 202212
  2. CISPLATIN [Suspect]
     Active Substance: CISPLATIN
     Dosage: UNK
     Dates: start: 202212
  3. FLUOROURACIL [Suspect]
     Active Substance: FLUOROURACIL
     Dosage: UNK
     Dates: start: 202212
  4. BETADINE MOUTHWASH + GARGLE [Concomitant]

REACTIONS (3)
  - Stomatitis [Recovered/Resolved]
  - Oral neoplasm [Recovered/Resolved]
  - Soft tissue infection [Recovered/Resolved]

NARRATIVE: CASE EVENT DATE: 20230301
